FAERS Safety Report 13646386 (Version 1)
Quarter: 2017Q2

REPORT INFORMATION
  Report Type: Spontaneous
  Country: CN (occurrence: CN)
  Receive Date: 20170613
  Receipt Date: 20170613
  Transmission Date: 20170830
  Serious: Yes (Hospitalization)
  Sender: FDA-Public Use
  Company Number: CN-ASTRAZENECA-2017SE61577

PATIENT
  Age: 14610 Day
  Sex: Male

DRUGS (4)
  1. ROCEPHIN [Concomitant]
     Active Substance: CEFTRIAXONE SODIUM
     Indication: ABDOMINAL INFECTION
     Dosage: 2 G WAS DISSOLVED INTO NS 100ML
     Route: 042
     Dates: start: 20161117, end: 20161119
  2. LINEZOLID. [Suspect]
     Active Substance: LINEZOLID
     Indication: ABDOMINAL INFECTION
     Route: 042
     Dates: start: 20161121, end: 20161203
  3. VORICONAZOLE. [Concomitant]
     Active Substance: VORICONAZOLE
     Indication: ANTIFUNGAL TREATMENT
     Route: 048
     Dates: start: 20161127, end: 20161220
  4. MEPEM [Suspect]
     Active Substance: MEROPENEM
     Indication: ABDOMINAL INFECTION
     Route: 042
     Dates: start: 20161119, end: 20161203

REACTIONS (1)
  - Bone marrow failure [Unknown]

NARRATIVE: CASE EVENT DATE: 20161215
